FAERS Safety Report 7338443-9 (Version None)
Quarter: 2011Q1

REPORT INFORMATION
  Report Type: 
  Country: None (occurrence: None)
  Receive Date: 20110308
  Receipt Date: 20110304
  Transmission Date: 20110831
  Serious: Yes (Hospitalization, Other)
  Sender: FDA-Public Use
  Company Number: DE-ABBOTT-11P-062-0709474-00

PATIENT
  Age: 74 Year
  Sex: Female

DRUGS (8)
  1. PHENYTOIN [Suspect]
     Indication: APHASIA
     Dosage: OVER 1 HOUR, LOADING DOSE
     Route: 042
  2. VALPROIC ACID [Suspect]
     Indication: APHASIA
  3. TOPIRAMATE [Concomitant]
     Indication: PRODUCT USED FOR UNKNOWN INDICATION
  4. PHENYTOIN [Suspect]
     Indication: STATUS EPILEPTICUS
  5. LEVETIRACETAM [Concomitant]
     Indication: PRODUCT USED FOR UNKNOWN INDICATION
  6. VALPROIC ACID [Suspect]
     Indication: STATUS EPILEPTICUS
  7. PHENYTOIN [Suspect]
  8. ALBUMIN (HUMAN) [Concomitant]
     Indication: PRODUCT USED FOR UNKNOWN INDICATION
     Route: 042

REACTIONS (3)
  - QUADRIPARESIS [None]
  - GRAND MAL CONVULSION [None]
  - TOXICITY TO VARIOUS AGENTS [None]
